FAERS Safety Report 6707918-5 (Version None)
Quarter: 2010Q2

REPORT INFORMATION
  Report Type: 
  Country: None (occurrence: None)
  Receive Date: 20100503
  Receipt Date: 20090708
  Transmission Date: 20101027
  Serious: No
  Sender: FDA-Public Use
  Company Number: US-ASTRAZENECA-2009UW19322

PATIENT
  Age: 57 Year
  Sex: Female
  Weight: 77.1 kg

DRUGS (2)
  1. NEXIUM [Suspect]
     Route: 048
  2. MENAST [Concomitant]
     Indication: BLOOD OESTROGEN

REACTIONS (2)
  - GALLBLADDER DISORDER [None]
  - GASTROOESOPHAGEAL REFLUX DISEASE [None]
